FAERS Safety Report 4326395-5 (Version None)
Quarter: 2004Q1

REPORT INFORMATION
  Report Type: 
  Country: None (occurrence: None)
  Receive Date: 20040323
  Receipt Date: 20030310
  Transmission Date: 20041129
  Serious: Yes (Hospitalization)
  Sender: FDA-Public Use
  Company Number: US-JNJFOC-20031006264

PATIENT
  Age: 58 Year
  Sex: Male
  Weight: 131.5431 kg

DRUGS (11)
  1. REMICADE [Suspect]
     Indication: RHEUMATOID ARTHRITIS
     Dosage: 400 MG, INTRAVENOUS; 300 MG, INTRAVENOUS; 300 MG, INTRAVENOUS; INTRAVENOUS; 400 MG, INTRAVENOUS
     Route: 042
     Dates: start: 20030604, end: 20030604
  2. REMICADE [Suspect]
     Indication: RHEUMATOID ARTHRITIS
     Dosage: 400 MG, INTRAVENOUS; 300 MG, INTRAVENOUS; 300 MG, INTRAVENOUS; INTRAVENOUS; 400 MG, INTRAVENOUS
     Route: 042
     Dates: start: 20000501
  3. REMICADE [Suspect]
     Indication: RHEUMATOID ARTHRITIS
     Dosage: 400 MG, INTRAVENOUS; 300 MG, INTRAVENOUS; 300 MG, INTRAVENOUS; INTRAVENOUS; 400 MG, INTRAVENOUS
     Route: 042
     Dates: start: 20021218
  4. REMICADE [Suspect]
     Indication: RHEUMATOID ARTHRITIS
     Dosage: 400 MG, INTRAVENOUS; 300 MG, INTRAVENOUS; 300 MG, INTRAVENOUS; INTRAVENOUS; 400 MG, INTRAVENOUS
     Route: 042
     Dates: start: 20030212
  5. REMICADE [Suspect]
     Indication: RHEUMATOID ARTHRITIS
     Dosage: 400 MG, INTRAVENOUS; 300 MG, INTRAVENOUS; 300 MG, INTRAVENOUS; INTRAVENOUS; 400 MG, INTRAVENOUS
     Route: 042
     Dates: start: 20030409
  6. METHOTREXATE SODIUM [Concomitant]
  7. ATENOLOL [Concomitant]
  8. LIPITOR [Concomitant]
  9. ACCUPRIL [Concomitant]
  10. ASPIRIN [Concomitant]
  11. IMDUR [Concomitant]

REACTIONS (17)
  - ABDOMINAL SYMPTOM [None]
  - ARRHYTHMIA [None]
  - ASTHENIA [None]
  - BLOOD PRESSURE DECREASED [None]
  - CHEST DISCOMFORT [None]
  - COLD SWEAT [None]
  - CORONARY ARTERY DISEASE [None]
  - DIZZINESS [None]
  - ELECTROCARDIOGRAM T WAVE ABNORMAL [None]
  - ELECTROCARDIOGRAM T WAVE INVERSION [None]
  - FEELING ABNORMAL [None]
  - HEART RATE DECREASED [None]
  - INFUSION RELATED REACTION [None]
  - LOSS OF CONSCIOUSNESS [None]
  - NAUSEA [None]
  - SINUS BRADYCARDIA [None]
  - SYNCOPE VASOVAGAL [None]
